FAERS Safety Report 7107127-4 (Version None)
Quarter: 2010Q4

REPORT INFORMATION
  Report Type: 
  Country: None (occurrence: None)
  Receive Date: 20101116
  Receipt Date: 20101008
  Transmission Date: 20110411
  Serious: No
  Sender: FDA-Public Use
  Company Number: US-ABBOTT-10P-163-0677646-00

PATIENT
  Sex: Female
  Weight: 67.192 kg

DRUGS (4)
  1. SIMCOR [Suspect]
     Indication: HIGH DENSITY LIPOPROTEIN DECREASED
     Dosage: 500/20 MG
     Dates: start: 20100801, end: 20100901
  2. SIMCOR [Suspect]
     Dosage: 1000/20 MG ONCE DAILY
  3. FISH OIL [Concomitant]
     Indication: PRODUCT USED FOR UNKNOWN INDICATION
  4. ATIVAN [Concomitant]
     Indication: PRODUCT USED FOR UNKNOWN INDICATION
     Dosage: AT NIGHT

REACTIONS (4)
  - ERYTHEMA [None]
  - INCORRECT DOSE ADMINISTERED [None]
  - PARAESTHESIA [None]
  - RASH MACULAR [None]
